FAERS Safety Report 6108185-6 (Version None)
Quarter: 2009Q1

REPORT INFORMATION
  Report Type: 
  Country: None (occurrence: None)
  Receive Date: 20090304
  Receipt Date: 20081008
  Transmission Date: 20090719
  Serious: Yes (Hospitalization)
  Sender: FDA-Public Use
  Company Number: US-001944

PATIENT
  Age: 44 Year
  Sex: Female

DRUGS (4)
  1. ISOVUE-370 [Suspect]
     Indication: COMPUTERISED TOMOGRAM
     Dosage: 125ML QD INTRAVENOUS (NOT OTHERWISE SPECIFIED)
     Route: 042
     Dates: start: 20081003, end: 20081003
  2. ISOVUE-370 [Suspect]
     Indication: PERIPHERAL VASCULAR DISORDER
     Dosage: 125ML QD INTRAVENOUS (NOT OTHERWISE SPECIFIED)
     Route: 042
     Dates: start: 20081003, end: 20081003
  3. PREDNISONE (PREDNISONE0 [Concomitant]
  4. BENADRYL [Concomitant]

REACTIONS (1)
  - ANAPHYLACTOID REACTION [None]
